FAERS Safety Report 24294458 (Version 1)
Quarter: 2024Q3

REPORT INFORMATION
  Report Type: Report from Study
  Country: CA (occurrence: CA)
  Receive Date: 20240906
  Receipt Date: 20240906
  Transmission Date: 20241017
  Serious: Yes (Hospitalization, Other)
  Sender: ABBVIE
  Company Number: CA-ABBVIE-5649904

PATIENT
  Sex: Male

DRUGS (1)
  1. RINVOQ [Suspect]
     Active Substance: UPADACITINIB
     Indication: Dermatitis atopic
     Dosage: FORM STRENGTH: 15 MILLIGRAM
     Route: 048
     Dates: start: 20220606

REACTIONS (5)
  - Cerebrovascular accident [Unknown]
  - Neurogenic bladder [Unknown]
  - Cystitis [Not Recovered/Not Resolved]
  - Urine odour abnormal [Unknown]
  - Urine abnormality [Unknown]
